FAERS Safety Report 10543566 (Version 2)
Quarter: 2014Q4

REPORT INFORMATION
  Report Type: Spontaneous
  Country: GB (occurrence: GB)
  Receive Date: 20141027
  Receipt Date: 20141112
  Transmission Date: 20150529
  Serious: Yes (Hospitalization, Other)
  Sender: FDA-Public Use
  Company Number: GB-ACTAVIS-2014-22569

PATIENT
  Age: 51 Year
  Sex: Female

DRUGS (5)
  1. OMEPRAZOLE. [Concomitant]
     Active Substance: OMEPRAZOLE
     Indication: PRODUCT USED FOR UNKNOWN INDICATION
     Dosage: UNK
     Route: 065
  2. PREGABALIN. [Concomitant]
     Active Substance: PREGABALIN
     Indication: PRODUCT USED FOR UNKNOWN INDICATION
     Dosage: UNK
     Route: 065
     Dates: start: 2014
  3. GABAPENTIN (UNKNOWN) [Suspect]
     Active Substance: GABAPENTIN
     Indication: PAIN
     Dosage: UNK. SOMEWHERE BETWEEN 3600 MG - 5000 MG DAILY
     Route: 065
     Dates: end: 2006
  4. GABAPENTIN (UNKNOWN) [Suspect]
     Active Substance: GABAPENTIN
     Indication: NEURALGIA
     Dosage: 2000 MG, DAILY
     Route: 065
  5. COCODAMOL [Concomitant]
     Active Substance: ACETAMINOPHEN\CODEINE PHOSPHATE
     Indication: PRODUCT USED FOR UNKNOWN INDICATION
     Dosage: UNK
     Route: 065
     Dates: start: 200406

REACTIONS (7)
  - Infection [Not Recovered/Not Resolved]
  - Tooth abscess [Unknown]
  - Tooth infection [Not Recovered/Not Resolved]
  - Muscle injury [Unknown]
  - Gastrointestinal disorder [Unknown]
  - Osteomyelitis [Not Recovered/Not Resolved]
  - Gingivitis [Not Recovered/Not Resolved]

NARRATIVE: CASE EVENT DATE: 2010
